FAERS Safety Report 18847665 (Version 1)
Quarter: 2021Q1

REPORT INFORMATION
  Report Type: Spontaneous
  Country: US (occurrence: US)
  Receive Date: 20210204
  Receipt Date: 20210204
  Transmission Date: 20210419
  Serious: Yes (Hospitalization)
  Sender: FDA-Public Use
  Company Number: US-NOVOPROD-783956

PATIENT
  Sex: Female

DRUGS (2)
  1. NOVOLOG [Suspect]
     Active Substance: INSULIN ASPART
     Indication: PRODUCT USED FOR UNKNOWN INDICATION
     Dosage: VARIES
     Route: 065
  2. LEVEMIR [Suspect]
     Active Substance: INSULIN DETEMIR
     Indication: PRODUCT USED FOR UNKNOWN INDICATION
     Dosage: 38 IU, QD (AT NIGHT)
     Route: 065

REACTIONS (3)
  - Surgery [Recovered/Resolved]
  - Coronary artery occlusion [Recovering/Resolving]
  - Blood glucose increased [Recovered/Resolved]

NARRATIVE: CASE EVENT DATE: 202010
